FAERS Safety Report 9799047 (Version 2)
Quarter: 2014Q1

REPORT INFORMATION
  Report Type: Spontaneous
  Country: US (occurrence: US)
  Receive Date: 20140106
  Receipt Date: 20140106
  Transmission Date: 20141002
  Serious: No
  Sender: FDA-Public Use
  Company Number: US-GILEAD-2010-0032330

PATIENT
  Age: 79 Year
  Sex: Female
  Weight: 53.07 kg

DRUGS (30)
  1. LETAIRIS [Suspect]
     Indication: PULMONARY ARTERIAL HYPERTENSION
     Route: 048
     Dates: start: 20081002, end: 20101001
  2. COZAAR [Concomitant]
  3. ASPIRIN [Concomitant]
  4. FUROSEMIDE [Concomitant]
  5. SINGULAIR [Concomitant]
  6. GAVISCON [Concomitant]
  7. PREVACID [Concomitant]
  8. CRESTOR [Concomitant]
  9. ZETIA [Concomitant]
  10. TRIGLIDE [Concomitant]
  11. NORCO [Concomitant]
  12. METHOTREXATE [Concomitant]
  13. PREDNISONE [Concomitant]
  14. SYNTHROID [Concomitant]
  15. CELLCEPT [Concomitant]
  16. MYCOPHENOLATE [Concomitant]
  17. VIVELLE [Concomitant]
  18. BONIVA [Concomitant]
  19. ZOLOFT [Concomitant]
  20. CLARINEX [Concomitant]
  21. XYZAL [Concomitant]
  22. SLOW FE [Concomitant]
  23. KLOR-CON [Concomitant]
  24. CENTRUM SILVER [Concomitant]
  25. FOLIC ACID [Concomitant]
  26. FOLTX [Concomitant]
  27. CALCIUM [Concomitant]
  28. GLUCOSAMINE [Concomitant]
  29. SUPER B-50 COMPLEX [Concomitant]
  30. VITAMIN D [Concomitant]

REACTIONS (1)
  - Anaemia [Unknown]
